FAERS Safety Report 5104187-7 (Version None)
Quarter: 2006Q3

REPORT INFORMATION
  Report Type: 
  Country: None (occurrence: None)
  Receive Date: 20060911
  Receipt Date: 20060906
  Transmission Date: 20061208
  Serious: Yes (Death, Hospitalization)
  Sender: FDA-Public Use
  Company Number: 153-20785-06090156

PATIENT
  Age: 28 Year
  Sex: Male

DRUGS (1)
  1. THALOMID [Suspect]
     Indication: MALIGNANT HISTIOCYTOSIS
     Dosage: 400 MG DAILY INCREASED TO 600 MG PER DAY 3 DAYS LATER ORAL
     Route: 048

REACTIONS (7)
  - ANURIA [None]
  - HAEMODIALYSIS [None]
  - HEPATIC FUNCTION ABNORMAL [None]
  - LANGERHANS' CELL GRANULOMATOSIS [None]
  - MULTI-ORGAN FAILURE [None]
  - RENAL IMPAIRMENT [None]
  - SEPTIC SHOCK [None]
